FAERS Safety Report 7798108-6 (Version None)
Quarter: 2011Q4

REPORT INFORMATION
  Report Type: 
  Country: None (occurrence: None)
  Receive Date: 20111004
  Receipt Date: 20110921
  Transmission Date: 20120403
  Serious: Yes (Other)
  Sender: FDA-Public Use
  Company Number: 1000022964

PATIENT
  Age: 93 Year
  Sex: Female

DRUGS (10)
  1. NEBIVOLOL HCL [Suspect]
     Indication: CARDIAC FAILURE
     Dosage: 1.25 MG (1.25 MG, 1 IN 1 D), ORAL
     Route: 048
     Dates: start: 20110721, end: 20110819
  2. CLOPIDOGREL (CLOPIDOGREL) (CLOPIDOGREL) [Concomitant]
  3. THYROXINE (LEVOTHYROXINE SODIUM) (LEVOTHYROXINE SODIUM) [Concomitant]
  4. ATORVASTATIN (ATORAVASTATIN) (ATORVASTATIN) [Concomitant]
  5. OSTELIN (ERGOCALCIFEROL) (ERGOCACLIFEROL) [Concomitant]
  6. PANTOPRAZOLE (PANTOPRAZOLE) (PANTOPRAZOLE) [Concomitant]
  7. CANDESARTAN (CANDESARTAN) (CARNDESARTAN) [Concomitant]
  8. FRUSEMIDE (FUROSEMIDE) (FUROSEMIDE) [Concomitant]
  9. EVISTA [Concomitant]
  10. ALLOPURINOL [Concomitant]

REACTIONS (1)
  - CONFUSIONAL STATE [None]
